FAERS Safety Report 5196328-0 (Version None)
Quarter: 2007Q1

REPORT INFORMATION
  Report Type: 
  Country: None (occurrence: None)
  Receive Date: 20070102
  Receipt Date: 20061221
  Transmission Date: 20070707
  Serious: Yes (Other)
  Sender: FDA-Public Use
  Company Number: BR-PFIZER INC-2006155637

PATIENT
  Sex: Female

DRUGS (2)
  1. DEPO-PROVERA [Suspect]
     Indication: CONTRACEPTION
     Route: 030
     Dates: start: 20020301, end: 20020301
  2. DEPO-PROVERA [Suspect]
     Route: 030
     Dates: start: 20051101, end: 20051101

REACTIONS (7)
  - AMENORRHOEA [None]
  - ANOVULATORY CYCLE [None]
  - HAIR GROWTH ABNORMAL [None]
  - LABYRINTHITIS [None]
  - MENSTRUATION IRREGULAR [None]
  - SYNCOPE [None]
  - WEIGHT INCREASED [None]
